FAERS Safety Report 17733382 (Version 5)
Quarter: 2021Q2

REPORT INFORMATION
  Report Type: Report from Study
  Country: CA (occurrence: CA)
  Receive Date: 20200501
  Receipt Date: 20210405
  Transmission Date: 20210716
  Serious: Yes (Other)
  Sender: FDA-Public Use
  Company Number: NVSC2020CA111368

PATIENT
  Sex: Male

DRUGS (2)
  1. MAYZENT [Suspect]
     Active Substance: SIPONIMOD
     Indication: SECONDARY PROGRESSIVE MULTIPLE SCLEROSIS
     Dosage: UNK
     Route: 048
     Dates: start: 20200908
  2. BISOPROLOL [Suspect]
     Active Substance: BISOPROLOL
     Indication: SECONDARY PROGRESSIVE MULTIPLE SCLEROSIS
     Dosage: 2.5 MG, QD
     Route: 048

REACTIONS (6)
  - Dyspnoea [Unknown]
  - Fatigue [Unknown]
  - Expanded disability status scale score increased [Unknown]
  - Visual impairment [Unknown]
  - Product use in unapproved indication [Unknown]
  - Drug ineffective [Unknown]
